FAERS Safety Report 15578758 (Version 1)
Quarter: 2018Q4

REPORT INFORMATION
  Report Type: Spontaneous
  Country: US (occurrence: US)
  Receive Date: 20181102
  Receipt Date: 20181102
  Transmission Date: 20190205
  Serious: No
  Sender: FDA-Public Use
  Company Number: US-FLEXION THERAPEUTICS, INC.-2018FLS000051

PATIENT
  Age: 62 Year
  Sex: Male

DRUGS (4)
  1. ZILRETTA [Suspect]
     Active Substance: TRIAMCINOLONE ACETONIDE
     Indication: OSTEOARTHRITIS
     Route: 014
     Dates: start: 20180816, end: 20180816
  2. LABETALOL [Concomitant]
     Active Substance: LABETALOL\LABETALOL HYDROCHLORIDE
     Indication: PRODUCT USED FOR UNKNOWN INDICATION
  3. FLUTICASONE PROPIONATE. [Concomitant]
     Active Substance: FLUTICASONE PROPIONATE
     Indication: PRODUCT USED FOR UNKNOWN INDICATION
  4. HUMIRA [Concomitant]
     Active Substance: ADALIMUMAB
     Indication: CROHN^S DISEASE

REACTIONS (3)
  - Neck pain [Recovered/Resolved]
  - Blood pressure decreased [Recovered/Resolved]
  - Trismus [Recovered/Resolved]

NARRATIVE: CASE EVENT DATE: 201808
